FAERS Safety Report 25840821 (Version 1)
Quarter: 2025Q3

REPORT INFORMATION
  Report Type: Spontaneous
  Country: US (occurrence: None)
  Receive Date: 20250923
  Receipt Date: 20250923
  Transmission Date: 20251021
  Serious: Yes (Hospitalization)
  Sender: FDA-CTU
  Company Number: None

PATIENT
  Sex: Female

DRUGS (5)
  1. VYNDAMAX [Suspect]
     Active Substance: TAFAMIDIS
     Indication: Product used for unknown indication
     Route: 048
     Dates: start: 20230414
  2. AMIODARONE TAB 400MG [Concomitant]
  3. COQ10  CAP 100MG [Concomitant]
  4. ELIQUIS  TAB 5MG [Concomitant]
  5. VITAMIN C TAB 500MG [Concomitant]

REACTIONS (2)
  - Atrial fibrillation [None]
  - Arrhythmia [None]
